FAERS Safety Report 13968592 (Version 1)
Quarter: 2017Q3

REPORT INFORMATION
  Report Type: Spontaneous
  Country: US (occurrence: US)
  Receive Date: 20170914
  Receipt Date: 20170914
  Transmission Date: 20171128
  Serious: Yes (Death, Hospitalization, Other)
  Sender: FDA-Public Use
  Company Number: US-009507513-1709USA007241

PATIENT
  Age: 74 Year
  Sex: Male

DRUGS (3)
  1. KEYTRUDA [Suspect]
     Active Substance: PEMBROLIZUMAB
     Indication: LUNG CANCER METASTATIC
     Dosage: ^EVERY MONTH OR TWO MONTHS^
     Route: 042
     Dates: end: 201708
  2. VITAMINS (UNSPECIFIED) [Concomitant]
     Active Substance: VITAMINS
  3. IRON (UNSPECIFIED) [Concomitant]
     Active Substance: IRON

REACTIONS (4)
  - Pyrexia [Unknown]
  - Pneumonia [Unknown]
  - Anoxia [Fatal]
  - Full blood count decreased [Unknown]
